FAERS Safety Report 8780442 (Version 1)
Quarter: 2012Q4

REPORT INFORMATION
  Report Type: Spontaneous
  Country: US (occurrence: None)
  Receive Date: 20120905
  Receipt Date: 20120905
  Transmission Date: 20130627
  Serious: No
  Sender: FDA-Public Use
  Company Number: None

PATIENT
  Age: 57 Year
  Sex: Male

DRUGS (1)
  1. CARBAMAZEPINE [Suspect]
     Route: 048
     Dates: start: 20120518, end: 20120601

REACTIONS (2)
  - Platelet count decreased [None]
  - White blood cell count increased [None]
